FAERS Safety Report 6570510-X (Version None)
Quarter: 2010Q1

REPORT INFORMATION
  Report Type: 
  Country: None (occurrence: None)
  Receive Date: 20100204
  Receipt Date: 20100114
  Transmission Date: 20100710
  Serious: No
  Sender: FDA-Public Use
  Company Number: A0832263A

PATIENT
  Age: 49 Year
  Sex: Male

DRUGS (6)
  1. ARIXTRA [Suspect]
     Dosage: 1INJ PER DAY
     Route: 058
     Dates: start: 20090101
  2. INSULIN [Concomitant]
  3. PAXIL [Concomitant]
  4. SYNTHROID [Concomitant]
  5. BACLOFEN [Concomitant]
  6. VICODIN [Concomitant]

REACTIONS (3)
  - INJECTION SITE HAEMATOMA [None]
  - INJECTION SITE PAIN [None]
  - INJECTION SITE SWELLING [None]
